FAERS Safety Report 10426909 (Version 1)
Quarter: 2014Q3

REPORT INFORMATION
  Report Type: Spontaneous
  Country: US (occurrence: None)
  Receive Date: 20140902
  Receipt Date: 20140902
  Transmission Date: 20150326
  Serious: No
  Sender: FDA-Public Use
  Company Number: None

PATIENT
  Sex: Male

DRUGS (1)
  1. PROLIXIN [Suspect]
     Active Substance: FLUPHENAZINE HYDROCHLORIDE

REACTIONS (2)
  - Self injurious behaviour [None]
  - Delusion [None]
